FAERS Safety Report 19713610 (Version 1)
Quarter: 2021Q3

REPORT INFORMATION
  Report Type: Spontaneous
  Country: CN (occurrence: CN)
  Receive Date: 20210817
  Receipt Date: 20210817
  Transmission Date: 20211014
  Serious: Yes (Hospitalization, Other)
  Sender: FDA-Public Use
  Company Number: CN-BAXTER-2021BAX024968

PATIENT
  Age: 38 Year
  Sex: Female
  Weight: 49 kg

DRUGS (4)
  1. ENDOXAN [Suspect]
     Active Substance: CYCLOPHOSPHAMIDE
     Dosage: CYCLOPHOSPHAMIDE + 0.9% SODIUM CHLORIDE (DOSE RE?INTRODUCED)
     Route: 041
  2. ENDOXAN [Suspect]
     Active Substance: CYCLOPHOSPHAMIDE
     Indication: SYSTEMIC LUPUS ERYTHEMATOSUS
     Dosage: CYCLOPHOSPHAMIDE 0.2 G + 0.9% SODIUM CHLORIDE
     Route: 041
     Dates: start: 20210720, end: 20210731
  3. 0.9% SODIUM CHLORIDE INJECTION [Suspect]
     Active Substance: SODIUM CHLORIDE
     Indication: MEDICATION DILUTION
     Dosage: 0.9% SODIUM CHLORIDE + CYCLOPHOSPHAMIDE 0.2 G
     Route: 041
     Dates: start: 20210720, end: 20210731
  4. 0.9% SODIUM CHLORIDE INJECTION [Suspect]
     Active Substance: SODIUM CHLORIDE
     Dosage: 0.9% SODIUM CHLORIDE + CYCLOPHOSPHAMIDE (DOSE RE?INTRODUCED)
     Route: 041

REACTIONS (2)
  - Drug-induced liver injury [Unknown]
  - Hepatic function abnormal [Unknown]

NARRATIVE: CASE EVENT DATE: 20210728
